FAERS Safety Report 24452711 (Version 2)
Quarter: 2025Q1

REPORT INFORMATION
  Report Type: Spontaneous
  Country: US (occurrence: US)
  Receive Date: 20241017
  Receipt Date: 20250103
  Transmission Date: 20250408
  Serious: No
  Sender: Day One Biopharmaceuticals
  Company Number: US-DAY ONE BIOPHARMACEUTICALS, INC.-2024US000840

PATIENT

DRUGS (1)
  1. OJEMDA [Suspect]
     Active Substance: TOVORAFENIB
     Indication: Astrocytoma, low grade
     Route: 065
     Dates: start: 2024

REACTIONS (3)
  - Disease progression [Unknown]
  - Rash [Unknown]
  - Hair colour changes [Unknown]

NARRATIVE: CASE EVENT DATE: 20240101
